FAERS Safety Report 9853250 (Version 1)
Quarter: 2014Q1

REPORT INFORMATION
  Report Type: Spontaneous
  Country: BR (occurrence: BR)
  Receive Date: 20140129
  Receipt Date: 20140129
  Transmission Date: 20141002
  Serious: Yes (Other)
  Sender: FDA-Public Use
  Company Number: BR-009507513-1401BRA013005

PATIENT
  Age: 29 Year
  Sex: Female
  Weight: 60 kg

DRUGS (2)
  1. NUVARING [Suspect]
     Indication: CONTRACEPTION
     Dosage: 3 WEEKS OF USE AND 1 WEEK OF PAUSE
     Route: 067
     Dates: start: 2006, end: 201010
  2. NUVARING [Suspect]
     Dosage: 3 WEEKS OF USE AND 1 WEEK OF PAUSE
     Route: 067
     Dates: start: 201204, end: 20140120

REACTIONS (6)
  - Caesarean section [Recovered/Resolved]
  - Unintended pregnancy [Recovered/Resolved]
  - Premature separation of placenta [Recovered/Resolved]
  - Premature labour [Recovered/Resolved]
  - Labour complication [Recovered/Resolved]
  - Incorrect drug administration duration [Unknown]
